FAERS Safety Report 21411462 (Version 4)
Quarter: 2023Q2

REPORT INFORMATION
  Report Type: Spontaneous
  Country: US (occurrence: US)
  Receive Date: 20221005
  Receipt Date: 20230410
  Transmission Date: 20230721
  Serious: Yes (Other)
  Sender: FDA-Public Use
  Company Number: US-PFIZER INC-202201198030

PATIENT
  Age: 67 Year
  Sex: Female
  Weight: 48.53 kg

DRUGS (5)
  1. VFEND [Suspect]
     Active Substance: VORICONAZOLE
     Indication: Antifungal treatment
     Dosage: 200 MG, 2X/DAY (1 TABLET BY MOUTH EVERY 12 HOURS)
     Route: 048
     Dates: start: 20220903
  2. VFEND [Suspect]
     Active Substance: VORICONAZOLE
     Dosage: 200 MG, 2X/DAY (1X/ 12 HOURS)
     Dates: start: 20220907
  3. VENETOCLAX [Concomitant]
     Active Substance: VENETOCLAX
     Dosage: UNK
     Dates: start: 20220907
  4. LEVOFLOXACIN [Concomitant]
     Active Substance: LEVOFLOXACIN
     Dosage: UNK
     Dates: start: 20220907
  5. ALLOPURINOL [Concomitant]
     Active Substance: ALLOPURINOL
     Dosage: UNK
     Dates: start: 20220907

REACTIONS (9)
  - Shock [Unknown]
  - Insomnia [Unknown]
  - Nightmare [Unknown]
  - Illness [Unknown]
  - Feeling abnormal [Unknown]
  - Fear [Unknown]
  - Depressed mood [Unknown]
  - Bone pain [Not Recovered/Not Resolved]
  - Fatigue [Unknown]
